FAERS Safety Report 11330262 (Version 1)
Quarter: 2015Q3

REPORT INFORMATION
  Report Type: Spontaneous
  Country: US (occurrence: None)
  Receive Date: 20150730
  Receipt Date: 20150730
  Transmission Date: 20151125
  Serious: Yes (Life-Threatening, Hospitalization)
  Sender: FDA-Public Use
  Company Number: None

PATIENT
  Age: 77 Year
  Sex: Female

DRUGS (1)
  1. 6-MP [Suspect]
     Active Substance: MERCAPTOPURINE
     Indication: COLITIS

REACTIONS (1)
  - Acute myeloid leukaemia [None]

NARRATIVE: CASE EVENT DATE: 20150729
